FAERS Safety Report 9341384 (Version 1)
Quarter: 2013Q2

REPORT INFORMATION
  Report Type: Spontaneous
  Country: DE (occurrence: DE)
  Receive Date: 20130611
  Receipt Date: 20130611
  Transmission Date: 20140414
  Serious: Yes (Other)
  Sender: FDA-Public Use
  Company Number: DE-JNJFOC-20130605215

PATIENT
  Sex: Male

DRUGS (2)
  1. XARELTO [Suspect]
     Indication: THROMBOSIS
     Route: 065
  2. CALCIUM W/MAGNESIUM [Concomitant]
     Indication: HYPERSENSITIVITY
     Route: 065

REACTIONS (2)
  - Venous thrombosis limb [Unknown]
  - Drug ineffective [Unknown]
